FAERS Safety Report 11624666 (Version 2)
Quarter: 2019Q3

REPORT INFORMATION
  Report Type: Spontaneous
  Country: BR (occurrence: BR)
  Receive Date: 20151013
  Receipt Date: 20190916
  Transmission Date: 20191004
  Serious: Yes (Other)
  Sender: FDA-Public Use
  Company Number: BR-AMGEN-BRASP2012034367

PATIENT
  Age: 59 Year
  Sex: Female
  Weight: 80 kg

DRUGS (11)
  1. METFORMIN [Concomitant]
     Active Substance: METFORMIN HYDROCHLORIDE
     Dosage: 850 MILLIGRAM, BID
  2. HYDROCHLOROTHIAZIDE. [Concomitant]
     Active Substance: HYDROCHLOROTHIAZIDE
     Dosage: 12.5 MG (A HALF OF TABLET OF 25MG), 1X/DAY
  3. LEVOID [Concomitant]
     Active Substance: LEVOTHYROXINE
     Dosage: 150 MILLIGRAM, QD
  4. ENBREL [Suspect]
     Active Substance: ETANERCEPT
     Dosage: 50 MILLIGRAM, QWK
     Route: 058
  5. ENBREL [Suspect]
     Active Substance: ETANERCEPT
     Dosage: 50 MILLIGRAM, QWK
     Route: 058
  6. IBUPROFEN. [Concomitant]
     Active Substance: IBUPROFEN
     Indication: PAIN
     Dosage: 600 MILLIGRAM, QD
  7. PREDNISONE. [Concomitant]
     Active Substance: PREDNISONE
     Dosage: 5 MILLIGRAM, QD
  8. AMLODIPINE [Concomitant]
     Active Substance: AMLODIPINE BESYLATE
     Dosage: 5 MILLIGRAM, BID
  9. ATENOLOL. [Concomitant]
     Active Substance: ATENOLOL
     Dosage: 25 MILLIGRAM, BID
  10. ENBREL [Suspect]
     Active Substance: ETANERCEPT
     Indication: RHEUMATOID ARTHRITIS
     Dosage: 50 MILLIGRAM, QWK
     Route: 058
     Dates: start: 201202
  11. ENALAPRIL [Concomitant]
     Active Substance: ENALAPRIL
     Dosage: 10 MILLIGRAM, BID

REACTIONS (7)
  - Eye swelling [Not Recovered/Not Resolved]
  - Injection site pain [Unknown]
  - Swelling face [Not Recovered/Not Resolved]
  - Skin discolouration [Not Recovered/Not Resolved]
  - Injection site discolouration [Not Recovered/Not Resolved]
  - Injection site erythema [Unknown]
  - Blister [Not Recovered/Not Resolved]

NARRATIVE: CASE EVENT DATE: 2012
